FAERS Safety Report 5965218-5 (Version None)
Quarter: 2008Q4

REPORT INFORMATION
  Report Type: 
  Country: None (occurrence: None)
  Receive Date: 20081125
  Receipt Date: 20081118
  Transmission Date: 20090506
  Serious: Yes (Other)
  Sender: FDA-Public Use
  Company Number: US-WYE-H06894908

PATIENT
  Sex: Male
  Weight: 90.8 kg

DRUGS (12)
  1. EFFEXOR XR [Suspect]
     Indication: DEPRESSION
     Dosage: UNKNOWN
     Route: 048
     Dates: start: 20040101
  2. EFFEXOR XR [Suspect]
     Indication: ANXIETY
     Dosage: TITRATED TO 150 MG
     Route: 048
     Dates: end: 20080101
  3. EFFEXOR XR [Suspect]
     Route: 048
     Dates: start: 20080101, end: 20081101
  4. EFFEXOR XR [Suspect]
     Route: 048
     Dates: start: 20081102, end: 20081107
  5. EFFEXOR XR [Suspect]
     Route: 048
     Dates: start: 20081108, end: 20081113
  6. EFFEXOR XR [Suspect]
     Route: 048
     Dates: start: 20081114, end: 20081115
  7. PRAMIPEXOLE DIHYDROCHLORIDE [Concomitant]
  8. LIPITOR [Concomitant]
  9. LANTUS [Concomitant]
  10. QUINAPRIL [Concomitant]
  11. AMBIEN [Concomitant]
  12. HUMALOG [Concomitant]

REACTIONS (11)
  - ANXIETY [None]
  - CRYING [None]
  - DIZZINESS [None]
  - DRUG WITHDRAWAL SYNDROME [None]
  - FATIGUE [None]
  - HYPERHIDROSIS [None]
  - SOMNOLENCE [None]
  - SUICIDAL IDEATION [None]
  - SUICIDE ATTEMPT [None]
  - TREMOR [None]
  - WEIGHT INCREASED [None]
